FAERS Safety Report 10793201 (Version 2)
Quarter: 2015Q2

REPORT INFORMATION
  Report Type: Report from Study
  Country: IL (occurrence: IL)
  Receive Date: 20150213
  Receipt Date: 20150504
  Transmission Date: 20150821
  Serious: Yes (Hospitalization)
  Sender: FDA-Public Use
  Company Number: IL-BAYER-2015-018739

PATIENT
  Sex: Female

DRUGS (1)
  1. MIRENA [Suspect]
     Active Substance: LEVONORGESTREL
     Dosage: 20 MCG/24HR, CONT
     Route: 015
     Dates: start: 20140113, end: 20150203

REACTIONS (6)
  - Vertigo [None]
  - Dyspnoea [None]
  - Loss of consciousness [None]
  - Syncope [None]
  - Anxiety [None]
  - Discomfort [None]

NARRATIVE: CASE EVENT DATE: 201408
